FAERS Safety Report 22078458 (Version 2)
Quarter: 2025Q3

REPORT INFORMATION
  Report Type: Spontaneous
  Country: US (occurrence: US)
  Receive Date: 20230309
  Receipt Date: 20250718
  Transmission Date: 20251020
  Serious: No
  Sender: SANOFI AVENTIS
  Company Number: US-SA-SAC20230307000166

PATIENT
  Age: 58 Year
  Sex: Male

DRUGS (11)
  1. DUPIXENT [Suspect]
     Active Substance: DUPILUMAB
     Indication: Dermatitis atopic
     Dosage: 300 MG, QOW
     Route: 058
     Dates: start: 20211228
  2. FENOFIBRIC ACID [Concomitant]
     Active Substance: FENOFIBRIC ACID
  3. LISINOPRIL [Concomitant]
     Active Substance: LISINOPRIL
  4. OMEPRAZOLE [Concomitant]
     Active Substance: OMEPRAZOLE
  5. ROSUVASTATIN [Concomitant]
     Active Substance: ROSUVASTATIN
  6. TACROLIMUS [Concomitant]
     Active Substance: TACROLIMUS
  7. TESTOSTERONE [Concomitant]
     Active Substance: TESTOSTERONE
  8. TIMOLOL MALEATE [Concomitant]
     Active Substance: TIMOLOL MALEATE
  9. NITROGLYCERIN [Concomitant]
     Active Substance: NITROGLYCERIN
  10. LISINOPRIL [Concomitant]
     Active Substance: LISINOPRIL
  11. METHYLPREDNISOLONE [Concomitant]
     Active Substance: METHYLPREDNISOLONE

REACTIONS (3)
  - Glossitis [Unknown]
  - Drug ineffective [Unknown]
  - Product dose omission in error [Unknown]

NARRATIVE: CASE EVENT DATE: 20250614
